FAERS Safety Report 10261127 (Version 2)
Quarter: 2014Q2

REPORT INFORMATION
  Report Type: Spontaneous
  Country: IT (occurrence: IT)
  Receive Date: 20140626
  Receipt Date: 20140626
  Transmission Date: 20141212
  Serious: Yes (Other)
  Sender: FDA-Public Use
  Company Number: IT-JNJFOC-20140400504

PATIENT
  Age: 58 Year
  Sex: Male

DRUGS (4)
  1. DUROGESIC [Suspect]
     Indication: PAIN
     Route: 062
     Dates: start: 20130905, end: 20130910
  2. PECFENT [Suspect]
     Indication: PAIN
     Route: 045
     Dates: start: 20130905, end: 20130910
  3. SPASMEX [Concomitant]
     Indication: PRODUCT USED FOR UNKNOWN INDICATION
     Route: 048
  4. ANTRA [Concomitant]
     Indication: PRODUCT USED FOR UNKNOWN INDICATION
     Route: 048

REACTIONS (3)
  - Confusional state [Recovered/Resolved]
  - Constipation [Recovered/Resolved]
  - Inappropriate schedule of drug administration [Unknown]
